FAERS Safety Report 13200521 (Version 1)
Quarter: 2017Q1

REPORT INFORMATION
  Report Type: Report from Study
  Country: US (occurrence: US)
  Receive Date: 20170208
  Receipt Date: 20170208
  Transmission Date: 20170428
  Serious: Yes (Death, Other)
  Sender: FDA-Public Use
  Company Number: US-MYLANLABS-2017M1007658

PATIENT

DRUGS (7)
  1. PENTOSTATIN. [Suspect]
     Active Substance: PENTOSTATIN
     Dosage: DOSE REDUCED TO 50% OF THE DOSE 1.5MG/ME2/DAY, OVER 20-30 MIN WITH 1L HYDRATION AT THE 3ED DOSE
     Route: 041
  2. TACROLIMUS. [Concomitant]
     Active Substance: TACROLIMUS
     Indication: ACUTE GRAFT VERSUS HOST DISEASE
     Dosage: 0.03MG/KG/DAY, STARTING ON DAY -2
     Route: 042
  3. PENTOSTATIN. [Suspect]
     Active Substance: PENTOSTATIN
     Indication: ACUTE GRAFT VERSUS HOST DISEASE
     Dosage: 1.5 MG/ME2/DAY, OVER 20-30 MIN WITH 1L HYDRATION ON DAYS 1-3 OF EACH 14DAY CYCLE AND REDUCED TO 50%
     Route: 041
  4. ALEMTUZUMAB [Concomitant]
     Active Substance: ALEMTUZUMAB
     Indication: ACUTE GRAFT VERSUS HOST DISEASE
     Dosage: 20MG, ON DAYS -4 AND -3
     Route: 042
  5. FLUDARABINE [Concomitant]
     Active Substance: FLUDARABINE PHOSPHATE
     Indication: ACUTE GRAFT VERSUS HOST DISEASE
     Dosage: 30MG/ME2, ON DAYS -4, -3 AND -2
     Route: 042
  6. COTRIMOXAZOLE [Concomitant]
     Active Substance: SULFAMETHOXAZOLE\TRIMETHOPRIM
     Indication: ACUTE GRAFT VERSUS HOST DISEASE
     Dosage: 1600/800MG TWICE DAILY, TWICE WEEKLY
     Route: 065
  7. ACICLOVIR [Concomitant]
     Active Substance: ACYCLOVIR
     Indication: ACUTE GRAFT VERSUS HOST DISEASE
     Dosage: 200-400 MG 3 TIMES DAILY
     Route: 065

REACTIONS (2)
  - Cytomegalovirus viraemia [Unknown]
  - Sepsis [Fatal]
